FAERS Safety Report 8202786-7 (Version None)
Quarter: 2012Q1

REPORT INFORMATION
  Report Type: 
  Country: None (occurrence: None)
  Receive Date: 20120312
  Receipt Date: 20120312
  Transmission Date: 20120608
  Serious: Yes (Other)
  Sender: FDA-Public Use
  Company Number: None

PATIENT
  Age: 49 Year
  Sex: Female
  Weight: 61.234 kg

DRUGS (1)
  1. AVELOX [Suspect]
     Indication: LUNG INFECTION
     Dosage: 1 TABLET
     Route: 048
     Dates: start: 20120207, end: 20120211

REACTIONS (5)
  - TONSILLAR DISORDER [None]
  - HEADACHE [None]
  - DRY MOUTH [None]
  - SCLERAL DISCOLOURATION [None]
  - DIZZINESS [None]
